FAERS Safety Report 8490550-3 (Version None)
Quarter: 2012Q3

REPORT INFORMATION
  Report Type: 
  Country: None (occurrence: None)
  Receive Date: 20120705
  Receipt Date: 20120626
  Transmission Date: 20120928
  Serious: Yes (Hospitalization)
  Sender: FDA-Public Use
  Company Number: CH-ABBOTT-12P-151-0950464-00

PATIENT
  Sex: Female

DRUGS (2)
  1. HUMIRA [Suspect]
     Indication: CROHN'S DISEASE
     Dosage: UP TO NOW 7 INJECTIONS
  2. CORTISONE ACETATE [Concomitant]
     Indication: CROHN'S DISEASE
     Dosage: REDUCTION

REACTIONS (2)
  - HOSPITALISATION [None]
  - RASH [None]
